FAERS Safety Report 23495482 (Version 7)
Quarter: 2024Q3

REPORT INFORMATION
  Report Type: Report from Study
  Country: US (occurrence: US)
  Receive Date: 20240207
  Receipt Date: 20240826
  Transmission Date: 20241017
  Serious: Yes (Hospitalization, Other)
  Sender: TAKEDA
  Company Number: US-TAKEDA-2023TUS065895

PATIENT
  Sex: Male

DRUGS (2)
  1. MARIBAVIR [Suspect]
     Active Substance: MARIBAVIR
     Indication: Cytomegalovirus infection
     Dosage: 400 MILLIGRAM, BID
     Route: 048
     Dates: start: 20230628, end: 20240717
  2. VALCYTE [Suspect]
     Active Substance: VALGANCICLOVIR HYDROCHLORIDE
     Indication: Product used for unknown indication
     Dosage: UNK
     Route: 065

REACTIONS (12)
  - Heart transplant rejection [Unknown]
  - Rotavirus infection [Unknown]
  - Hip fracture [Recovering/Resolving]
  - Eye infection [Unknown]
  - Anosmia [Unknown]
  - Cardiac disorder [Unknown]
  - Renal disorder [Unknown]
  - Pain [Unknown]
  - COVID-19 [Unknown]
  - Fall [Recovering/Resolving]
  - Diarrhoea [Recovered/Resolved]
  - Ageusia [Unknown]
